FAERS Safety Report 10482401 (Version 2)
Quarter: 2015Q1

REPORT INFORMATION
  Report Type: Report from Study
  Country: US (occurrence: US)
  Receive Date: 20140929
  Receipt Date: 20150220
  Transmission Date: 20150720
  Serious: Yes (Other)
  Sender: FDA-Public Use
  Company Number: US-ALEXION-A200901532

PATIENT
  Sex: Male

DRUGS (2)
  1. SOLIRIS [Suspect]
     Active Substance: ECULIZUMAB
     Indication: PAROXYSMAL NOCTURNAL HAEMOGLOBINURIA
     Dosage: UNK
     Route: 042
     Dates: start: 20090218
  2. SOLIRIS [Suspect]
     Active Substance: ECULIZUMAB
     Dosage: UNK
     Route: 042
     Dates: start: 20130909

REACTIONS (10)
  - Dyspnoea [Unknown]
  - Fatigue [Unknown]
  - Drug dependence [Unknown]
  - Chromaturia [Unknown]
  - Abdominal pain [Unknown]
  - Anxiety [Unknown]
  - Pain [Unknown]
  - Hearing disability [Unknown]
  - Nausea [Unknown]
  - Stress [Unknown]
